FAERS Safety Report 7590851-7 (Version None)
Quarter: 2011Q3

REPORT INFORMATION
  Report Type: 
  Country: None (occurrence: None)
  Receive Date: 20110705
  Receipt Date: 20110623
  Transmission Date: 20111222
  Serious: Yes (Other)
  Sender: FDA-Public Use
  Company Number: PHHY2010AU70512

PATIENT
  Sex: Male

DRUGS (4)
  1. RAMIPRIL [Concomitant]
     Dosage: 1.25 MG, AT NIGHTLY
  2. ATORVASTATIN [Concomitant]
     Dosage: 800 MG, QD
  3. METOPROLOL TARTRATE [Concomitant]
     Dosage: 25 MG, BID
  4. CLOZAPINE [Suspect]
     Dosage: 125MG MANE AND 400MG NOCTE
     Dates: start: 19981119

REACTIONS (16)
  - DILATATION VENTRICULAR [None]
  - MYOCARDIAL STRAIN [None]
  - BLOOD PRESSURE INCREASED [None]
  - MYOCARDITIS [None]
  - SLEEP DISORDER [None]
  - EJECTION FRACTION DECREASED [None]
  - TACHYCARDIA [None]
  - CARDIAC ENZYMES INCREASED [None]
  - HYPOTENSION [None]
  - HYPOKINESIA [None]
  - DYSPNOEA [None]
  - TROPONIN I INCREASED [None]
  - INFARCTION [None]
  - MYOCARDIAL ISCHAEMIA [None]
  - ELECTROCARDIOGRAM ST SEGMENT ABNORMAL [None]
  - MITRAL VALVE DISEASE [None]
